FAERS Safety Report 4367236-X (Version None)
Quarter: 2004Q2

REPORT INFORMATION
  Report Type: 
  Country: None (occurrence: None)
  Receive Date: 20040526
  Receipt Date: 20040512
  Transmission Date: 20050107
  Serious: Yes (Other)
  Sender: FDA-Public Use
  Company Number: ZONI001411

PATIENT
  Age: 52 Year
  Sex: Male

DRUGS (1)
  1. ZONEGRAN [Suspect]
     Indication: HEADACHE
     Dosage: 300 MG DAILY ORAL
     Route: 048
     Dates: start: 20040101, end: 20040101

REACTIONS (7)
  - AMNESIA [None]
  - DISTURBANCE IN ATTENTION [None]
  - DRY MOUTH [None]
  - NEOPLASM RECURRENCE [None]
  - NEPHROLITHIASIS [None]
  - TONGUE NEOPLASM [None]
  - WEIGHT DECREASED [None]
